FAERS Safety Report 24288189 (Version 1)
Quarter: 2024Q3

REPORT INFORMATION
  Report Type: Report from Study
  Country: CA (occurrence: CA)
  Receive Date: 20240905
  Receipt Date: 20240905
  Transmission Date: 20241016
  Serious: Yes (Other)
  Sender: VERITY PHARMACEUTICALS
  Company Number: CA-VER-202400457

PATIENT
  Age: 72 Year
  Sex: Male

DRUGS (2)
  1. TRELSTAR [Suspect]
     Active Substance: TRIPTORELIN PAMOATE
     Indication: Prostate cancer
     Dosage: 22.5MG ONCE EVERY 06 MONTHS VIA AN INTRAMUSCULAR POWDER FOR PROLONGED-RELEASE SUSPENSION FOR INJECTI
     Route: 030
     Dates: start: 20240103, end: 20240103
  2. TRELSTAR [Suspect]
     Active Substance: TRIPTORELIN PAMOATE
     Indication: Prostate cancer
     Dosage: START DATE: 26-JUN-2024?22.5MG ONCE EVERY 06 MONTHS VIA AN INTRAMUSCULAR POWDER FOR PROLONGED-RELEAS
     Route: 030
     Dates: end: 20240626

REACTIONS (2)
  - Blood pressure increased [Recovering/Resolving]
  - Inappropriate schedule of product administration [Recovered/Resolved]

NARRATIVE: CASE EVENT DATE: 20240103
